FAERS Safety Report 12863083 (Version 4)
Quarter: 2017Q1

REPORT INFORMATION
  Report Type: Spontaneous
  Country: JP (occurrence: JP)
  Receive Date: 20161019
  Receipt Date: 20170116
  Transmission Date: 20170428
  Serious: Yes (Life-Threatening, Hospitalization, Other)
  Sender: FDA-Public Use
  Company Number: JP-JNJFOC-20161013410

PATIENT
  Age: 13 Year
  Sex: Male
  Weight: 31 kg

DRUGS (6)
  1. TOPINA [Suspect]
     Active Substance: TOPIRAMATE
     Indication: EPILEPSY
     Dosage: AT AGE OF 11 DOSE INCREASED TO 250 MG
     Route: 048
  2. DIAZEPAM. [Suspect]
     Active Substance: DIAZEPAM
     Indication: TONIC CONVULSION
     Route: 054
  3. TOPINA [Suspect]
     Active Substance: TOPIRAMATE
     Indication: EPILEPSY
     Route: 048
  4. MIDAZOLAM [Concomitant]
     Active Substance: MIDAZOLAM HYDROCHLORIDE
     Indication: SEIZURE
     Route: 065
  5. TOPINA [Suspect]
     Active Substance: TOPIRAMATE
     Indication: EPILEPSY
     Route: 048
  6. SELENICA-R [Interacting]
     Active Substance: VALPROATE SODIUM
     Indication: EPILEPSY
     Route: 048

REACTIONS (6)
  - Somnolence [Unknown]
  - Drug interaction [Unknown]
  - Altered state of consciousness [Recovered/Resolved]
  - Respiratory disorder [Unknown]
  - Hypothermia [Recovered/Resolved]
  - Platelet count decreased [Recovering/Resolving]
